FAERS Safety Report 15099283 (Version 1)
Quarter: 2018Q3

REPORT INFORMATION
  Report Type: Spontaneous
  Country: CA (occurrence: CA)
  Receive Date: 20180702
  Receipt Date: 20180702
  Transmission Date: 20181010
  Serious: Yes (Other)
  Sender: FDA-Public Use
  Company Number: CA-PFIZER INC-2018258177

PATIENT
  Age: 58 Year
  Sex: Male

DRUGS (6)
  1. METHYLPREDNISOLONE. [Suspect]
     Active Substance: METHYLPREDNISOLONE
     Dosage: UNK
     Route: 042
     Dates: start: 20180614, end: 20180617
  2. CALCIUM [Concomitant]
     Active Substance: CALCIUM
     Dosage: 1 TABLET DAILY
     Route: 048
  3. FLAGYL [Suspect]
     Active Substance: METRONIDAZOLE\METRONIDAZOLE HYDROCHLORIDE
     Indication: CLOSTRIDIUM DIFFICILE INFECTION
     Dosage: UNK
     Route: 042
     Dates: start: 20180614, end: 20180617
  4. MULTIVITAMIN (16) [Suspect]
     Active Substance: VITAMINS
     Dosage: 1 TABLET  DAILY
     Route: 048
  5. METRONIDAZOLE. [Concomitant]
     Active Substance: METRONIDAZOLE
     Dosage: 500 MG, EVERY 8 HOURS
     Route: 048
     Dates: start: 20180617
  6. PREDNISONE. [Concomitant]
     Active Substance: PREDNISONE
     Dosage: 50 MG, 1X/DAY ((TAPERING 5 MG WEEKLY)
     Route: 048
     Dates: start: 20180617

REACTIONS (1)
  - Intestinal obstruction [Unknown]
